FAERS Safety Report 11571726 (Version 1)
Quarter: 2015Q3

REPORT INFORMATION
  Report Type: Spontaneous
  Country: US (occurrence: US)
  Receive Date: 20150929
  Receipt Date: 20150929
  Transmission Date: 20151125
  Serious: Yes (Other)
  Sender: FDA-Public Use
  Company Number: US-SA-2015SA115926

PATIENT
  Sex: Female

DRUGS (1)
  1. AUBAGIO [Suspect]
     Active Substance: TERIFLUNOMIDE
     Indication: MULTIPLE SCLEROSIS
     Dosage: 1 TABLET BY MOUTH DAILY
     Route: 048

REACTIONS (6)
  - Nausea [Unknown]
  - Fall [Unknown]
  - Multiple sclerosis relapse [Unknown]
  - Alopecia [Unknown]
  - Diarrhoea [Unknown]
  - Cystitis [Unknown]
